FAERS Safety Report 11458046 (Version 1)
Quarter: 2015Q3

REPORT INFORMATION
  Report Type: Report from Study
  Country: US (occurrence: US)
  Receive Date: 20150904
  Receipt Date: 20150904
  Transmission Date: 20151125
  Serious: No
  Sender: FDA-Public Use
  Company Number: PHEH2014US019970

PATIENT
  Age: 50 Year
  Sex: Female
  Weight: 70.7 kg

DRUGS (1)
  1. GILENYA [Suspect]
     Active Substance: FINGOLIMOD HYDROCHLORIDE
     Indication: MULTIPLE SCLEROSIS
     Dosage: 0.5 MG, QD
     Route: 048
     Dates: start: 20140827

REACTIONS (10)
  - Leukopenia [Unknown]
  - Thrombocytopenia [Unknown]
  - Gait disturbance [Unknown]
  - Thrombocytosis [Unknown]
  - Joint stiffness [Unknown]
  - Malaise [Recovered/Resolved]
  - Blood count abnormal [Unknown]
  - Lymphopenia [Unknown]
  - Neutropenia [Unknown]
  - Increased tendency to bruise [Unknown]

NARRATIVE: CASE EVENT DATE: 20140928
